FAERS Safety Report 8763988 (Version 1)
Quarter: 2012Q4

REPORT INFORMATION
  Report Type: 
  Country: US (occurrence: US)
  Receive Date: 20120831
  Receipt Date: 20120831
  Transmission Date: 20130627
  Serious: No
  Sender: FDA-Public Use
  Company Number: US-ASTRAZENECA-2011SE59966

PATIENT
  Age: 15025 Day
  Sex: Male

DRUGS (8)
  1. SYMBICORT PMDI [Suspect]
     Dosage: 160/4.5 MCG, TWO PUFFS Two times a day
     Route: 055
  2. SPIRIVA HANDIHALER [Concomitant]
     Dosage: 18 MCG
     Route: 055
     Dates: start: 20110912
  3. VENTOLIN HFA [Concomitant]
     Dosage: 180 (90 BASE) MCG, TWO INHALATIONS FOUR TIMES DAILY, AS NEEDED.
     Route: 055
     Dates: start: 20110912
  4. AMOXICILLIN [Concomitant]
     Route: 048
     Dates: start: 20110912
  5. ALBUTEROL SULFATE [Concomitant]
     Indication: DYSPNOEA
     Dosage: 2.5 MG/3 ML 0.083%, FOUR TIMES DAILY, AS NEEDED
     Route: 055
     Dates: start: 20101112
  6. ALBUTEROL SULFATE [Concomitant]
     Indication: WHEEZING
     Dosage: 2.5 MG/3 ML 0.083%, FOUR TIMES DAILY, AS NEEDED
     Route: 055
     Dates: start: 20101112
  7. NEBULIZER [Concomitant]
     Indication: DYSPNOEA
     Dates: start: 20101112
  8. NEBULIZER [Concomitant]
     Indication: WHEEZING
     Dates: start: 20101112

REACTIONS (3)
  - Chronic obstructive pulmonary disease [Unknown]
  - Chronic obstructive pulmonary disease [Unknown]
  - Bronchitis [Unknown]
